FAERS Safety Report 8349567-1 (Version None)
Quarter: 2012Q2

REPORT INFORMATION
  Report Type: 
  Country: None (occurrence: None)
  Receive Date: 20120510
  Receipt Date: 20120502
  Transmission Date: 20120825
  Serious: Yes (Hospitalization)
  Sender: FDA-Public Use
  Company Number: US-BAYER-2011-021606

PATIENT
  Age: 38 Year
  Sex: Female
  Weight: 61.224 kg

DRUGS (11)
  1. AUGMENTIN [Concomitant]
     Dosage: 875 MG/125 MG TWICE DAILY
     Route: 048
     Dates: start: 20070713
  2. YAZ [Suspect]
     Indication: PREMENSTRUAL SYNDROME
     Dosage: UNK UNK, QD
     Route: 048
     Dates: start: 20060901, end: 20070701
  3. IMITREX [Concomitant]
     Dosage: UNK
     Dates: start: 20070101, end: 20100101
  4. TOPAMAX [Concomitant]
     Dosage: 25 MG DAILY FOR 1 WEEK, THEN TWO TIMES DAILY
     Route: 048
  5. AMBIEN [Concomitant]
     Indication: PRODUCT USED FOR UNKNOWN INDICATION
     Dosage: 12.5 MG, UNK
     Route: 048
     Dates: start: 20060101, end: 20070101
  6. BUSPAR [Concomitant]
     Dosage: 15 MG, BID
     Route: 048
     Dates: start: 20070615
  7. LAMICTAL [Concomitant]
     Dosage: 3 UNK, UNK
     Route: 048
  8. FIORICET W/ CODEINE [Concomitant]
     Dosage: UNK UNK, TID
     Route: 048
     Dates: start: 20070615
  9. PREVACID [Concomitant]
     Dosage: 30 MG, QD
     Route: 048
     Dates: start: 20070615
  10. YASMIN [Suspect]
     Indication: ABDOMINAL PAIN
  11. KLONOPIN [Concomitant]
     Indication: PRODUCT USED FOR UNKNOWN INDICATION
     Dosage: 1 MG, UNK
     Route: 048

REACTIONS (3)
  - MENTAL DISORDER [None]
  - DEEP VEIN THROMBOSIS [None]
  - INJURY [None]
